FAERS Safety Report 7996857-8 (Version None)
Quarter: 2011Q4

REPORT INFORMATION
  Report Type: 
  Country: None (occurrence: None)
  Receive Date: 20111221
  Receipt Date: 20111213
  Transmission Date: 20120403
  Serious: Yes (Hospitalization)
  Sender: FDA-Public Use
  Company Number: US-BAYER-2011-062608

PATIENT
  Sex: Female
  Weight: 49.887 kg

DRUGS (10)
  1. YASMIN [Suspect]
     Indication: PREMENSTRUAL SYNDROME
     Dosage: UNK
  2. VALTREX [Concomitant]
     Dosage: 500 MG, UNK
     Route: 048
  3. BENICAR [Concomitant]
     Dosage: 20 MG, QD
     Route: 048
     Dates: start: 20050524
  4. XANAX [Concomitant]
     Dosage: 25 MG, UNK
     Route: 048
  5. NEXIUM [Concomitant]
     Dosage: 40 MG, QD
     Route: 048
  6. YASMIN [Suspect]
     Indication: ACNE
     Dosage: UNK
     Dates: start: 20050301, end: 20090601
  7. LIPITOR [Concomitant]
     Dosage: 10 MG, QD
     Route: 048
  8. ADIPEX-P [Concomitant]
     Dosage: 37.5 MG, UNK
     Route: 048
  9. ALLEGRA [Concomitant]
     Route: 048
  10. TREXIMET [Concomitant]
     Route: 048

REACTIONS (6)
  - INJURY [None]
  - ANXIETY [None]
  - PAIN [None]
  - EMOTIONAL DISTRESS [None]
  - DYSPHAGIA [None]
  - CEREBROVASCULAR ACCIDENT [None]
